FAERS Safety Report 17256886 (Version 1)
Quarter: 2020Q1

REPORT INFORMATION
  Report Type: Spontaneous
  Country: US (occurrence: US)
  Receive Date: 20200108
  Receipt Date: 20200108
  Transmission Date: 20200409
  Serious: No
  Sender: FDA-Public Use
  Company Number: None

PATIENT
  Age: 60 Year
  Sex: Male
  Weight: 85.05 kg

DRUGS (2)
  1. ALFUZOSIN HYDROCHLORIDE EXTENDED-RELEASE TABLETS USP 10 MG [Suspect]
     Active Substance: ALFUZOSIN HYDROCHLORIDE
     Indication: BENIGN PROSTATIC HYPERPLASIA
     Dosage: ?          QUANTITY:90 TABLET(S);?
     Route: 048
     Dates: start: 20191227
  2. ALFUZOSIN HYDROCHLORIDE EXTENDED-RELEASE TABLETS USP 10 MG [Suspect]
     Active Substance: ALFUZOSIN HYDROCHLORIDE
     Indication: MICTURITION URGENCY
     Dosage: ?          QUANTITY:90 TABLET(S);?
     Route: 048
     Dates: start: 20191227

REACTIONS (3)
  - Product physical issue [None]
  - Product substitution [None]
  - Drug ineffective [None]

NARRATIVE: CASE EVENT DATE: 20191227
